FAERS Safety Report 8023470-9 (Version None)
Quarter: 2012Q1

REPORT INFORMATION
  Report Type: 
  Country: None (occurrence: None)
  Receive Date: 20120105
  Receipt Date: 20111228
  Transmission Date: 20120608
  Serious: Yes (Hospitalization, Other)
  Sender: FDA-Public Use
  Company Number: US-BIOGENIDEC-2011BI049069

PATIENT
  Age: 54 Year
  Sex: Female

DRUGS (2)
  1. AVONEX [Suspect]
     Indication: MULTIPLE SCLEROSIS
     Route: 030
     Dates: end: 20030801
  2. AVONEX [Suspect]
     Route: 030
     Dates: start: 20030801

REACTIONS (8)
  - OEDEMA PERIPHERAL [None]
  - MEMORY IMPAIRMENT [None]
  - SKIN ULCER [None]
  - CONVULSION [None]
  - HYPERTENSION [None]
  - BLOOD SODIUM DECREASED [None]
  - NEUROGENIC BLADDER [None]
  - MULTIPLE SCLEROSIS RELAPSE [None]
